FAERS Safety Report 7352865-1 (Version None)
Quarter: 2011Q1

REPORT INFORMATION
  Report Type: 
  Country: None (occurrence: None)
  Receive Date: 20110315
  Receipt Date: 20110308
  Transmission Date: 20110831
  Serious: Yes (Hospitalization)
  Sender: FDA-Public Use
  Company Number: JP-ROCHE-764935

PATIENT
  Age: 6 Year
  Sex: Female

DRUGS (1)
  1. TAMIFLU [Suspect]
     Indication: INFLUENZA
     Dosage: DRUG: TAMIFLU DRY SYRUP 3% (OSELTMIVIR).
     Route: 048
     Dates: start: 20110227, end: 20110302

REACTIONS (3)
  - PLATELET COUNT DECREASED [None]
  - RENAL DISORDER [None]
  - LIVER DISORDER [None]
